FAERS Safety Report 16550503 (Version 1)
Quarter: 2019Q3

REPORT INFORMATION
  Report Type: Spontaneous
  Country: US (occurrence: US)
  Receive Date: 20190709
  Receipt Date: 20190709
  Transmission Date: 20191004
  Serious: No
  Sender: FDA-Public Use
  Company Number: None

PATIENT
  Age: 43 Year
  Sex: Female
  Weight: 73.35 kg

DRUGS (1)
  1. MICONAZOLE 3 [Suspect]
     Active Substance: MICONAZOLE NITRATE
     Indication: FUNGAL INFECTION
     Dosage: ?          QUANTITY:3 INJECTION(S);?
     Route: 067
     Dates: start: 20190708, end: 20190709

REACTIONS (2)
  - Adverse event [None]
  - Product complaint [None]

NARRATIVE: CASE EVENT DATE: 20190709
